FAERS Safety Report 18485891 (Version 1)
Quarter: 2020Q4

REPORT INFORMATION
  Report Type: Spontaneous
  Country: US (occurrence: US)
  Receive Date: 20201110
  Receipt Date: 20201110
  Transmission Date: 20210114
  Serious: No
  Sender: FDA-Public Use
  Company Number: None

PATIENT
  Age: 76 Year
  Sex: Female
  Weight: 68.13 kg

DRUGS (1)
  1. OLANZAPINE. [Suspect]
     Active Substance: OLANZAPINE
     Dates: start: 20200903, end: 20200917

REACTIONS (5)
  - Blood pressure decreased [None]
  - Social avoidant behaviour [None]
  - Depression [None]
  - Hypophagia [None]
  - Delusion [None]

NARRATIVE: CASE EVENT DATE: 20200903
